FAERS Safety Report 7255471-2 (Version None)
Quarter: 2011Q1

REPORT INFORMATION
  Report Type: 
  Country: None (occurrence: None)
  Receive Date: 20110129
  Receipt Date: 20100315
  Transmission Date: 20110831
  Serious: Yes (Other)
  Sender: FDA-Public Use
  Company Number: US-ABBOTT-10P-163-0632951-00

PATIENT
  Sex: Female

DRUGS (2)
  1. HUMIRA [Suspect]
     Indication: PSORIASIS
     Dates: start: 20100201
  2. HUMIRA [Suspect]
     Dosage: 80MG INITIAL DOSE
     Dates: start: 20100213, end: 20100213

REACTIONS (4)
  - CYST [None]
  - CATARACT [None]
  - PSORIASIS [None]
  - HYPERKERATOSIS [None]
